FAERS Safety Report 7817079-7 (Version None)
Quarter: 2011Q4

REPORT INFORMATION
  Report Type: 
  Country: None (occurrence: None)
  Receive Date: 20111017
  Receipt Date: 20111011
  Transmission Date: 20120403
  Serious: Yes (Death)
  Sender: FDA-Public Use
  Company Number: PHHY2011HU89931

PATIENT
  Age: 59 Year
  Sex: Male

DRUGS (4)
  1. ANTIHYPERTENSIVE DRUGS [Concomitant]
     Dosage: UNK
  2. TIOTROPIUM [Concomitant]
     Dosage: UNK
  3. ALBUTEROL [Concomitant]
     Dosage: 2 PUFFS DAILY DOSE AS NEEDED
  4. INDACATEROL [Suspect]
     Indication: CHRONIC OBSTRUCTIVE PULMONARY DISEASE
     Dosage: 150 UG, QD
     Dates: start: 20110201

REACTIONS (1)
  - DEATH [None]
